FAERS Safety Report 4317978-7 (Version None)
Quarter: 2004Q1

REPORT INFORMATION
  Report Type: 
  Country: None (occurrence: None)
  Receive Date: 20040316
  Receipt Date: 20040106
  Transmission Date: 20041129
  Serious: Yes (Hospitalization, Other)
  Sender: FDA-Public Use
  Company Number: PHNR2004AU00455

PATIENT
  Age: 32 Year
  Sex: Male

DRUGS (2)
  1. CLOZARIL [Suspect]
     Indication: SCHIZOPHRENIA
     Dosage: 12.5 - 300 MG/DAY
     Dates: start: 20020612, end: 20031201
  2. CLOZARIL [Suspect]
     Dosage: 12.5 - 100 MG/DAY
     Dates: start: 20031230

REACTIONS (6)
  - AGITATION [None]
  - BLOOD CREATINE PHOSPHOKINASE INCREASED [None]
  - FALL [None]
  - INJURY [None]
  - MUSCLE INJURY [None]
  - PSYCHOTIC DISORDER [None]
